FAERS Safety Report 8587748-2 (Version None)
Quarter: 2012Q3

REPORT INFORMATION
  Report Type: 
  Country: None (occurrence: None)
  Receive Date: 20120813
  Receipt Date: 20120807
  Transmission Date: 20120928
  Serious: Yes (Hospitalization)
  Sender: FDA-Public Use
  Company Number: CA-AMGEN-CANSP2012049566

PATIENT
  Age: 65 Year
  Sex: Female

DRUGS (7)
  1. CLOZARIL [Concomitant]
     Dosage: UNK
  2. ENBREL [Suspect]
     Indication: PRODUCT USED FOR UNKNOWN INDICATION
     Dosage: 50 MG, QWK
     Route: 058
  3. PLAQUENIL [Concomitant]
     Dosage: UNK
  4. HYDROCHLOROTHIAZIDE [Concomitant]
     Dosage: UNK
  5. METHOTREXATE [Suspect]
     Dosage: 25 MG, QWK
     Route: 058
  6. FOLIC ACID [Concomitant]
     Dosage: UNK
  7. SYNTHROID [Concomitant]
     Dosage: UNK

REACTIONS (3)
  - CYSTITIS [None]
  - PNEUMONIA [None]
  - DYSPNOEA [None]
